FAERS Safety Report 23352877 (Version 1)
Quarter: 2023Q4

REPORT INFORMATION
  Report Type: Spontaneous
  Country: US (occurrence: US)
  Receive Date: 20231230
  Receipt Date: 20231230
  Transmission Date: 20240110
  Serious: No
  Sender: FDA-Public Use
  Company Number: US-ABBVIE-5565414

PATIENT
  Age: 24 Year
  Sex: Female
  Weight: 145 kg

DRUGS (1)
  1. LILETTA [Suspect]
     Active Substance: LEVONORGESTREL
     Indication: Contraception
     Dosage: TIME INTERVAL: AS NECESSARY: FORM STRENGTH: 52 MILLIGRAM
     Route: 015
     Dates: start: 20231227, end: 20231227

REACTIONS (2)
  - Complication of device insertion [Not Recovered/Not Resolved]
  - Procedural pain [Unknown]

NARRATIVE: CASE EVENT DATE: 20231227
